FAERS Safety Report 17361882 (Version 4)
Quarter: 2020Q3

REPORT INFORMATION
  Report Type: Spontaneous
  Country: JP (occurrence: JP)
  Receive Date: 20200203
  Receipt Date: 20200803
  Transmission Date: 20201102
  Serious: Yes (Hospitalization, Other)
  Sender: FDA-Public Use
  Company Number: JP-AMGEN-JPNSP2020016228

PATIENT
  Age: 92 Year
  Sex: Male
  Weight: 46 kg

DRUGS (16)
  1. EVENITY [Suspect]
     Active Substance: ROMOSOZUMAB-AQQG
     Indication: OSTEOPOROSIS
     Dosage: 210 MILLIGRAM
     Route: 058
     Dates: start: 20190621
  2. EVENITY [Suspect]
     Active Substance: ROMOSOZUMAB-AQQG
     Indication: LUMBAR VERTEBRAL FRACTURE
  3. TRAMAL [Concomitant]
     Active Substance: TRAMADOL
     Indication: LUMBAR VERTEBRAL FRACTURE
     Dosage: 25 MILLIGRAM, BID (STARTED ONE TABLET OG 25 MG TWICE DAILYMANY YEARS BEFORE)
  4. SCOPOLIA EXTRACT [SCOPOLIA CARNIOLICA EXTRACT] [Concomitant]
     Indication: CHRONIC GASTRITIS
     Dosage: 0.2 GRAM, TID, SINCE MANY YEARS
  5. PLAVIX [Concomitant]
     Active Substance: CLOPIDOGREL BISULFATE
     Dosage: 100 MILLIGRAM, QD
  6. EDIROL [Concomitant]
     Active Substance: ELDECALCITOL
     Indication: OSTEOPOROSIS
     Dosage: 0.75 MICROGRAM, QD (STARTED 1 TABLET OF 0.75 MCG ONCE DAILY MANY YEARS BEFORE)
     Dates: start: 20151208
  7. UNISIA [Concomitant]
     Active Substance: AMLODIPINE BESYLATE\CANDESARTAN CILEXETIL
     Indication: HYPERTENSION
     Dosage: 1 DOSAGE FORM, QD (STARTED MANY YEARS BEFORE)
  8. VESICARE [Concomitant]
     Active Substance: SOLIFENACIN SUCCINATE
     Indication: HYPERTONIC BLADDER
     Dosage: 5 MILLIGRAM (1 TABLET), QD, SINCE MANY YEARS
  9. TAKECAB [Concomitant]
     Active Substance: VONOPRAZAN FUMARATE
     Dosage: UNK
  10. FLIVAS [Concomitant]
     Active Substance: NAFTOPIDIL
     Dosage: 50 MILLIGRAM, QD
  11. LENDORMIN [Concomitant]
     Active Substance: BROTIZOLAM
     Indication: INSOMNIA
     Dosage: 1 DOSAGE FORM (0.25), QD, SINCE MANY YEARS
  12. PARIET [Concomitant]
     Active Substance: RABEPRAZOLE SODIUM
     Indication: GASTROOESOPHAGEAL REFLUX DISEASE
     Dosage: 10 MILLIGRAM, QD (STARTED MANY YEARS BEFORE)
  13. ARICEPT [Concomitant]
     Active Substance: DONEPEZIL HYDROCHLORIDE
     Indication: DEMENTIA ALZHEIMER^S TYPE
     Dosage: 5 MILLIGRAM, QD (STARTED ONE TABLET OF 5MG ONCE DAILY MAN YEARS BEFORE )
  14. HALCION [Concomitant]
     Active Substance: TRIAZOLAM
     Dosage: 0.25 MILLIGRAM, QD
  15. AVOLVE [Concomitant]
     Active Substance: DUTASTERIDE
     Indication: BENIGN PROSTATIC HYPERPLASIA
     Dosage: 1 DOSAGE FORM (0.5), QD, STARTED MANY YEARS BEFORE
  16. SELBEX [Concomitant]
     Active Substance: TEPRENONE
     Indication: CHRONIC GASTRITIS
     Dosage: 0.5 GRAM, TID, SINCE MANY YEARS

REACTIONS (3)
  - Incorrect dose administered [Unknown]
  - Peripheral arterial occlusive disease [Recovered/Resolved]
  - Acute myocardial infarction [Recovered/Resolved]

NARRATIVE: CASE EVENT DATE: 20191203
